FAERS Safety Report 9123185 (Version 1)
Quarter: 2013Q1

REPORT INFORMATION
  Report Type: Spontaneous
  Country: US (occurrence: None)
  Receive Date: 20130225
  Receipt Date: 20130225
  Transmission Date: 20140127
  Serious: Yes (Other)
  Sender: FDA-Public Use
  Company Number: None

PATIENT
  Age: 58 Year
  Sex: Male
  Weight: 117.94 kg

DRUGS (9)
  1. PIOGLITAZONE [Suspect]
     Indication: DIABETES MELLITUS
     Dosage: 1 TABLET QAM  PO
     Route: 048
     Dates: start: 20121215, end: 20121218
  2. MS CONTIN [Concomitant]
  3. BENADRYL [Concomitant]
  4. VESICARE [Concomitant]
  5. METOPROLOL [Concomitant]
  6. CRESTOR [Concomitant]
  7. ASPIRIN [Concomitant]
  8. NITROGLYCERIN [Concomitant]
  9. AMLODIPINE [Concomitant]

REACTIONS (3)
  - Pollakiuria [None]
  - Product odour abnormal [None]
  - Product quality issue [None]
